FAERS Safety Report 18147761 (Version 2)
Quarter: 2020Q3

REPORT INFORMATION
  Report Type: Report from Study
  Country: None (occurrence: RU)
  Receive Date: 20200813
  Receipt Date: 20200818
  Transmission Date: 20201103
  Serious: Yes (Death, Other)
  Sender: FDA-Public Use
  Company Number: RU-ABBVIE-20K-251-3524235-00

PATIENT

DRUGS (1)
  1. IBRUTINIB [Suspect]
     Active Substance: IBRUTINIB
     Indication: CHRONIC LYMPHOCYTIC LEUKAEMIA REFRACTORY
     Route: 048
     Dates: start: 20150101, end: 20181231

REACTIONS (15)
  - Hepatitis B reactivation [Unknown]
  - Adverse event [Unknown]
  - Cerebrovascular accident [Fatal]
  - Neutropenia [Unknown]
  - Cardiovascular disorder [Fatal]
  - Treatment noncompliance [Unknown]
  - Embolism venous [Fatal]
  - Neoplasm [Fatal]
  - Drug eruption [Unknown]
  - Myalgia [Unknown]
  - Hepatotoxicity [Unknown]
  - Atrial fibrillation [Unknown]
  - Sinus bradycardia [Unknown]
  - Haemorrhage [Unknown]
  - Infection [Fatal]
